FAERS Safety Report 25813231 (Version 1)
Quarter: 2025Q3

REPORT INFORMATION
  Report Type: Spontaneous
  Country: EU (occurrence: EU)
  Receive Date: 20250917
  Receipt Date: 20250917
  Transmission Date: 20251020
  Serious: Yes (Hospitalization, Other)
  Sender: PFIZER
  Company Number: None

PATIENT
  Age: 77 Year
  Sex: Male

DRUGS (5)
  1. PIPERACILLIN SODIUM\TAZOBACTAM SODIUM [Suspect]
     Active Substance: PIPERACILLIN SODIUM\TAZOBACTAM SODIUM
     Indication: Pyrexia
     Route: 042
     Dates: start: 20250307
  2. VIDAZA [Suspect]
     Active Substance: AZACITIDINE
     Indication: Acute leukaemia
     Route: 058
     Dates: start: 20250311, end: 20250317
  3. VENETOCLAX [Suspect]
     Active Substance: VENETOCLAX
     Indication: Acute leukaemia
     Route: 048
     Dates: start: 20250311, end: 20250311
  4. VENETOCLAX [Suspect]
     Active Substance: VENETOCLAX
     Route: 048
     Dates: start: 20250312, end: 20250312
  5. VENETOCLAX [Suspect]
     Active Substance: VENETOCLAX
     Dosage: 4 DF, 1X/DAY (400 MG/J)
     Route: 048
     Dates: start: 20250313

REACTIONS (3)
  - Haematuria [Recovered/Resolved]
  - Acute kidney injury [Not Recovered/Not Resolved]
  - Off label use [Unknown]

NARRATIVE: CASE EVENT DATE: 20250307
